FAERS Safety Report 8454899 (Version 6)
Quarter: 2014Q1

REPORT INFORMATION
  Report Type: Spontaneous
  Country: US (occurrence: US)
  Receive Date: 20120312
  Receipt Date: 20140227
  Transmission Date: 20141002
  Serious: Yes (Hospitalization, Disabling, Other)
  Sender: FDA-Public Use
  Company Number: US-ASTRAZENECA-2012SE15613

PATIENT
  Age: 65 Year
  Sex: Female
  Weight: 81.6 kg

DRUGS (22)
  1. NEXIUM [Suspect]
     Indication: GASTROOESOPHAGEAL REFLUX DISEASE
     Route: 048
     Dates: start: 2002
  2. NEXIUM [Suspect]
     Indication: GASTROOESOPHAGEAL REFLUX DISEASE
     Route: 048
     Dates: start: 2002
  3. NEXIUM [Suspect]
     Indication: GASTROOESOPHAGEAL REFLUX DISEASE
     Route: 048
     Dates: end: 20140217
  4. NEXIUM [Suspect]
     Indication: GASTROOESOPHAGEAL REFLUX DISEASE
     Route: 048
     Dates: end: 20140217
  5. CRESTOR [Suspect]
     Indication: BLOOD CHOLESTEROL INCREASED
     Route: 048
  6. PRILOSEC [Suspect]
     Indication: GASTROOESOPHAGEAL REFLUX DISEASE
     Route: 048
     Dates: start: 2013
  7. PRILOSEC [Suspect]
     Indication: GASTROOESOPHAGEAL REFLUX DISEASE
     Route: 048
     Dates: start: 2013
  8. VERAPAMIL [Concomitant]
     Indication: CEREBROVASCULAR ACCIDENT
     Dosage: 480 DAILY
     Route: 048
     Dates: start: 2009
  9. VERAPAMIL [Concomitant]
     Indication: CEREBROVASCULAR ACCIDENT
     Dosage: 360 DAILY
  10. FOLIC ACID [Concomitant]
     Indication: SUPPLEMENTATION THERAPY
     Dosage: 1 PILL DAILY
  11. GABAPENTUM [Concomitant]
     Indication: PHOTOPSIA
     Dosage: 400 TID
  12. GABAPENTUM [Concomitant]
     Indication: PHOTOPSIA
     Route: 048
  13. LEVOTHYROXINE [Concomitant]
     Indication: THYROID DISORDER
  14. LEVOTHYROXINE [Concomitant]
     Indication: THYROID DISORDER
     Route: 048
  15. LEVOTHYROXINE [Concomitant]
     Indication: THYROID DISORDER
     Route: 048
  16. OXYBUTININ [Concomitant]
  17. ASA [Concomitant]
  18. BETA CAROTENE [Concomitant]
     Indication: SUPPLEMENTATION THERAPY
     Dosage: 1 PILL DAILY
     Route: 048
  19. VITAMIN D [Concomitant]
     Indication: SUPPLEMENTATION THERAPY
     Dosage: 1 PILL DAILY
     Route: 048
  20. VITAMIN C [Concomitant]
     Indication: SUPPLEMENTATION THERAPY
     Dosage: 1 PILL DAILY
     Route: 048
  21. METFORMIN [Concomitant]
     Indication: GLUCOSE TOLERANCE IMPAIRED
  22. MULTIVITAMIN [Concomitant]
     Indication: SUPPLEMENTATION THERAPY
     Dosage: 1 PILL DAILY

REACTIONS (15)
  - Migraine [Unknown]
  - Arthritis [Unknown]
  - Trigger finger [Unknown]
  - Dyspepsia [Unknown]
  - Cognitive disorder [Recovered/Resolved]
  - Photopsia [Unknown]
  - Intentional drug misuse [Unknown]
  - Off label use [Unknown]
  - Drug dose omission [Unknown]
  - Blindness [Recovering/Resolving]
  - Cerebrovascular accident [Unknown]
  - Vasospasm [Unknown]
  - Carpal tunnel syndrome [Unknown]
  - Hemiplegia [Recovered/Resolved]
  - Migraine [Unknown]
